FAERS Safety Report 17683258 (Version 2)
Quarter: 2020Q2

REPORT INFORMATION
  Report Type: Spontaneous
  Country: AU (occurrence: AU)
  Receive Date: 20200420
  Receipt Date: 20200622
  Transmission Date: 20200714
  Serious: Yes (Death, Life-Threatening, Other)
  Sender: FDA-Public Use
  Company Number: AU-BRISTOL-MYERS SQUIBB COMPANY-BMS-2020-032079

PATIENT
  Age: 83 Year
  Sex: Female

DRUGS (1)
  1. OPDIVO [Suspect]
     Active Substance: NIVOLUMAB
     Indication: METASTATIC MALIGNANT MELANOMA
     Dosage: UNK
     Route: 042
     Dates: start: 20191113, end: 20191113

REACTIONS (2)
  - Myasthenia gravis crisis [Unknown]
  - Myocarditis [Fatal]

NARRATIVE: CASE EVENT DATE: 20191211
